FAERS Safety Report 4983123-8 (Version None)
Quarter: 2006Q2

REPORT INFORMATION
  Report Type: 
  Country: None (occurrence: None)
  Receive Date: 20060420
  Receipt Date: 20060410
  Transmission Date: 20061013
  Serious: Yes (Other)
  Sender: FDA-Public Use
  Company Number: 2006050147

PATIENT
  Age: 62 Year
  Sex: Female
  Weight: 69.8539 kg

DRUGS (8)
  1. NEURONTIN [Suspect]
     Indication: NEURALGIA
     Dates: start: 20050101, end: 20060101
  2. LYRICA [Suspect]
     Indication: NEURALGIA
     Dosage: 100 MG (50 MG , 2  IN 1 D)
     Dates: start: 20060406
  3. FEMHRT [Concomitant]
  4. DYAZIDE [Concomitant]
  5. ZETIA [Concomitant]
  6. VITAMINS (VITAMINS) [Concomitant]
  7. GLUCOSAMINE WITH MEM (GLUCOSAMINE, METHYLSULFONYMETHANE) [Concomitant]
  8. GLUCOSAMINE W/CHLNDROITIN SULFATES (ASCORBIC ACID, CHONDROITIN SULFATE [Concomitant]

REACTIONS (6)
  - CONSTIPATION [None]
  - DEPRESSION [None]
  - DRUG INEFFECTIVE [None]
  - INADEQUATE ANALGESIA [None]
  - SURGICAL PROCEDURE REPEATED [None]
  - WEIGHT INCREASED [None]
